FAERS Safety Report 10171296 (Version 1)
Quarter: 2014Q2

REPORT INFORMATION
  Report Type: Spontaneous
  Country: US (occurrence: None)
  Receive Date: 20140507
  Receipt Date: 20140507
  Transmission Date: 20141212
  Serious: Yes (Hospitalization)
  Sender: FDA-Public Use
  Company Number: E2090-02949-SPO-US

PATIENT
  Age: 27 Year
  Sex: Male
  Weight: 56 kg

DRUGS (1)
  1. ZONEGRAN [Suspect]
     Indication: PARTIAL SEIZURES
     Route: 048
     Dates: start: 2010, end: 20131025

REACTIONS (2)
  - Rhabdomyolysis [None]
  - Convulsion [None]
